FAERS Safety Report 24588820 (Version 2)
Quarter: 2024Q4

REPORT INFORMATION
  Report Type: Spontaneous
  Country: US (occurrence: US)
  Receive Date: 20241107
  Receipt Date: 20241113
  Transmission Date: 20250115
  Serious: No
  Sender: PFIZER
  Company Number: US-PFIZER INC-PV202400143545

PATIENT
  Sex: Male

DRUGS (1)
  1. PROTONIX [Suspect]
     Active Substance: PANTOPRAZOLE SODIUM
     Indication: Haemorrhage
     Dosage: UNK

REACTIONS (3)
  - Dysphagia [Unknown]
  - Off label use [Unknown]
  - Drug effective for unapproved indication [Unknown]
